FAERS Safety Report 9425246 (Version 1)
Quarter: 2013Q3

REPORT INFORMATION
  Report Type: Spontaneous
  Country: PR (occurrence: PR)
  Receive Date: 20130729
  Receipt Date: 20130729
  Transmission Date: 20140515
  Serious: No
  Sender: FDA-Public Use
  Company Number: PR-BAXTER-2013BAX028680

PATIENT
  Sex: Female
  Weight: 1.85 kg

DRUGS (9)
  1. PREMASOL 6% [Suspect]
     Indication: PARENTERAL NUTRITION
     Dosage: 3.5 GRAM/KG
     Route: 042
  2. 0.9% SODIUM CHLORIDE INJECTION USP [Suspect]
     Indication: PARENTERAL NUTRITION
     Dosage: 1 MEQ/KG
     Route: 042
  3. 70% DEXTROSE INJECTION USP [Suspect]
     Indication: PARENTERAL NUTRITION
     Route: 042
  4. 10 MEQ POTASSIUM CHLORIDE 500 ML [Suspect]
     Indication: PARENTERAL NUTRITION
     Dosage: 1 MEQ/KG
     Route: 042
  5. CALCIUM GLUCONATE [Suspect]
     Indication: PARENTERAL NUTRITION
  6. MAGNESIUM SULFATE [Suspect]
     Indication: PARENTERAL NUTRITION
  7. MULTITRACE PED-4 [Suspect]
     Indication: PARENTERAL NUTRITION
  8. HEPARIN [Suspect]
     Indication: PARENTERAL NUTRITION
  9. FOLIC ACID [Suspect]
     Indication: PARENTERAL NUTRITION

REACTIONS (2)
  - Drug dispensing error [Recovered/Resolved]
  - Incorrect dose administered [Recovered/Resolved]
